FAERS Safety Report 7211393-4 (Version None)
Quarter: 2011Q1

REPORT INFORMATION
  Report Type: 
  Country: None (occurrence: None)
  Receive Date: 20110105
  Receipt Date: 20110104
  Transmission Date: 20110831
  Serious: Yes (Other)
  Sender: FDA-Public Use
  Company Number: US-CEPHALON-2010006523

PATIENT
  Sex: Female
  Weight: 50 kg

DRUGS (5)
  1. ZOLOFT [Concomitant]
     Dates: start: 20030101
  2. NUVIGIL [Suspect]
     Route: 048
     Dates: start: 20101111, end: 20101112
  3. NUVIGIL [Suspect]
     Indication: SOMNOLENCE
     Route: 048
     Dates: start: 20101110, end: 20101111
  4. ENABLEX [Concomitant]
     Dates: start: 20090101
  5. OMEPRAZOLE [Concomitant]
     Dates: start: 20080101

REACTIONS (4)
  - DYSPNOEA [None]
  - IRRITABILITY [None]
  - ANXIETY [None]
  - HEADACHE [None]
